FAERS Safety Report 4576282-2 (Version None)
Quarter: 2005Q1

REPORT INFORMATION
  Report Type: 
  Country: None (occurrence: None)
  Receive Date: 20050207
  Receipt Date: 20050124
  Transmission Date: 20050727
  Serious: Yes (Hospitalization)
  Sender: FDA-Public Use
  Company Number: 2005021720

PATIENT
  Age: 52 Year
  Sex: Male
  Weight: 120 kg

DRUGS (1)
  1. CELEBREX [Suspect]
     Indication: ILL-DEFINED DISORDER
     Dosage: ORAL
     Route: 048

REACTIONS (5)
  - HENOCH-SCHONLEIN PURPURA [None]
  - JOINT SWELLING [None]
  - LEUKOCYTOCLASTIC VASCULITIS [None]
  - PURPURA [None]
  - VASCULAR PURPURA [None]
